FAERS Safety Report 16201874 (Version 1)
Quarter: 2019Q2

REPORT INFORMATION
  Report Type: Spontaneous
  Country: RO (occurrence: RO)
  Receive Date: 20190416
  Receipt Date: 20190416
  Transmission Date: 20190711
  Serious: Yes (Death, Other)
  Sender: FDA-Public Use
  Company Number: RO-SA-2019SA101783

PATIENT
  Age: 6 Year
  Sex: Female

DRUGS (5)
  1. ZOLEDRONIC ACID [Suspect]
     Active Substance: ZOLEDRONIC ACID
     Indication: FEMUR FRACTURE
     Route: 042
  2. CALCITONIN, SALMON [Suspect]
     Active Substance: CALCITONIN SALMON
     Indication: HYPERCALCAEMIA
     Dosage: 4 IU/KG, Q12H
  3. ZOLEDRONIC ACID [Suspect]
     Active Substance: ZOLEDRONIC ACID
     Indication: OSTEOLYSIS
  4. CLOFARABINE. [Suspect]
     Active Substance: CLOFARABINE
     Indication: ACUTE LYMPHOCYTIC LEUKAEMIA
  5. CLODRONATO [Concomitant]
     Active Substance: CLODRONATE DISODIUM
     Indication: HYPERCALCAEMIA
     Route: 048

REACTIONS (10)
  - Fungal sepsis [Unknown]
  - Disease progression [Fatal]
  - Pancytopenia [Unknown]
  - Fungal infection [Unknown]
  - Vision blurred [Unknown]
  - Multiple organ dysfunction syndrome [Unknown]
  - Drug ineffective [Fatal]
  - Hypocalcaemia [Recovering/Resolving]
  - Necrosis [Unknown]
  - Acute lymphocytic leukaemia [Fatal]
